FAERS Safety Report 4561843-7 (Version None)
Quarter: 2005Q1

REPORT INFORMATION
  Report Type: 
  Country: None (occurrence: None)
  Receive Date: 20050125
  Receipt Date: 20050117
  Transmission Date: 20050727
  Serious: Yes (Other)
  Sender: FDA-Public Use
  Company Number: 200510250BCC

PATIENT
  Age: 55 Year
  Sex: Male
  Weight: 147.419 kg

DRUGS (2)
  1. ASPIRIN [Suspect]
     Indication: ISCHAEMIC HEART DISEASE PROPHYLAXIS
  2. ANTIHYPERTENSIVES [Concomitant]

REACTIONS (2)
  - GASTRIC DISORDER [None]
  - VASCULAR RUPTURE [None]
